FAERS Safety Report 6078468-7 (Version None)
Quarter: 2009Q1

REPORT INFORMATION
  Report Type: 
  Country: None (occurrence: None)
  Receive Date: 20090212
  Receipt Date: 20090212
  Transmission Date: 20090719
  Serious: Yes (Hospitalization)
  Sender: FDA-Public Use
  Company Number: None

PATIENT
  Age: 28 Year
  Sex: Female
  Weight: 86.1834 kg

DRUGS (1)
  1. CELEBREX [Suspect]
     Indication: ARTHROPATHY
     Dosage: 100 MG 1 PER DAY PO
     Route: 048
     Dates: start: 20090207, end: 20090208

REACTIONS (2)
  - BLISTER [None]
  - HYPERSENSITIVITY [None]
